FAERS Safety Report 16722382 (Version 4)
Quarter: 2019Q4

REPORT INFORMATION
  Report Type: Report from Study
  Country: None (occurrence: PT)
  Receive Date: 20190820
  Receipt Date: 20191002
  Transmission Date: 20200122
  Serious: Yes (Hospitalization)
  Sender: FDA-Public Use
  Company Number: PT-ABBVIE-19P-130-2885815-00

PATIENT
  Age: 23 Year
  Sex: Male

DRUGS (5)
  1. HEMOFISSURAL [Concomitant]
     Indication: ANAL FISSURE
     Route: 054
     Dates: start: 20190301
  2. UPADACITINIB [Suspect]
     Active Substance: UPADACITINIB
     Indication: DERMATITIS ATOPIC
     Route: 048
     Dates: start: 20190513, end: 20190806
  3. HEMOFISSURAL [Concomitant]
     Indication: ANAL FISTULA
     Route: 054
     Dates: start: 20190608
  4. OMEPRAZOL [Concomitant]
     Active Substance: OMEPRAZOLE
     Indication: PROPHYLAXIS
     Route: 048
     Dates: start: 20190515, end: 20190830
  5. XEMOSE CREME [Concomitant]
     Indication: DRY SKIN PROPHYLAXIS
     Route: 061
     Dates: start: 20190311

REACTIONS (1)
  - Rhabdomyolysis [Recovered/Resolved]

NARRATIVE: CASE EVENT DATE: 20190809
